FAERS Safety Report 7229826-6 (Version None)
Quarter: 2011Q1

REPORT INFORMATION
  Report Type: 
  Country: None (occurrence: None)
  Receive Date: 20110117
  Receipt Date: 20110110
  Transmission Date: 20110831
  Serious: Yes (Other)
  Sender: FDA-Public Use
  Company Number: US-JNJCH-2011000984

PATIENT
  Age: 49 Year
  Sex: Female

DRUGS (1)
  1. ADVANCED LISTERINE WITH TARTAR PROTECTION [Suspect]
     Indication: ALCOHOL USE
     Dosage: TEXT:DRANK ABOUT HALF A BOTTLE, HALF OF 8.5OZ
     Route: 048

REACTIONS (4)
  - IMPAIRED DRIVING ABILITY [None]
  - OFF LABEL USE [None]
  - INTENTIONAL DRUG MISUSE [None]
  - INTENTIONAL OVERDOSE [None]
